FAERS Safety Report 10308173 (Version 1)
Quarter: 2014Q3

REPORT INFORMATION
  Report Type: Spontaneous
  Country: US (occurrence: None)
  Receive Date: 20140715
  Receipt Date: 20140715
  Transmission Date: 20150326
  Serious: No
  Sender: FDA-Public Use
  Company Number: None

PATIENT
  Sex: Male
  Weight: 22.77 kg

DRUGS (1)
  1. CLONIDINE HYDROCHLORIDE EXTENDED-RELEASE [Suspect]
     Active Substance: CLONIDINE HYDROCHLORIDE
     Indication: ATTENTION DEFICIT/HYPERACTIVITY DISORDER
     Dates: start: 20131126, end: 20140306

REACTIONS (4)
  - Attention deficit/hyperactivity disorder [None]
  - Drug ineffective [None]
  - Condition aggravated [None]
  - Product substitution issue [None]
